FAERS Safety Report 24147207 (Version 1)
Quarter: 2024Q3

REPORT INFORMATION
  Report Type: Report from Study
  Country: AR (occurrence: None)
  Receive Date: 20240729
  Receipt Date: 20240729
  Transmission Date: 20241016
  Serious: Yes (Hospitalization)
  Sender: ASTRAZENECA
  Company Number: 2022A167007

PATIENT
  Sex: Male

DRUGS (1)
  1. TAGRISSO [Suspect]
     Active Substance: OSIMERTINIB
     Indication: Lung neoplasm malignant
     Dosage: 80.0MG UNKNOWN
     Route: 048
     Dates: start: 20210119

REACTIONS (2)
  - Venous thrombosis [Not Recovered/Not Resolved]
  - Pneumonia [Not Recovered/Not Resolved]
